FAERS Safety Report 13187976 (Version 1)
Quarter: 2017Q1

REPORT INFORMATION
  Report Type: Spontaneous
  Country: GB (occurrence: GB)
  Receive Date: 20170206
  Receipt Date: 20170206
  Transmission Date: 20170428
  Serious: Yes (Life-Threatening)
  Sender: FDA-Public Use
  Company Number: GB-AUROBINDO-AUR-APL-2017-28322

PATIENT
  Age: 69 Year
  Sex: Male
  Weight: 109 kg

DRUGS (1)
  1. CLARITHROMYCIN 500MG [Suspect]
     Active Substance: CLARITHROMYCIN
     Indication: LOWER RESPIRATORY TRACT INFECTION
     Dosage: 500 MG, TWO TIMES A DAY
     Route: 048
     Dates: start: 20161205, end: 20161212

REACTIONS (2)
  - Depression [Recovered/Resolved]
  - Suicidal ideation [Unknown]

NARRATIVE: CASE EVENT DATE: 20161222
